FAERS Safety Report 7589833-0 (Version None)
Quarter: 2011Q2

REPORT INFORMATION
  Report Type: 
  Country: None (occurrence: None)
  Receive Date: 20110627
  Receipt Date: 20110616
  Transmission Date: 20111010
  Serious: Yes (Death, Hospitalization)
  Sender: FDA-Public Use
  Company Number: 118595

PATIENT
  Age: 53 Year
  Sex: Male

DRUGS (1)
  1. CISPLATIN [Suspect]
     Indication: ADENOCARCINOMA
     Dosage: 20 MG/M2

REACTIONS (3)
  - VOMITING [None]
  - ABDOMINAL PAIN [None]
  - AORTIC THROMBOSIS [None]
